FAERS Safety Report 8491962-4 (Version None)
Quarter: 2012Q3

REPORT INFORMATION
  Report Type: 
  Country: None (occurrence: None)
  Receive Date: 20120706
  Receipt Date: 20120627
  Transmission Date: 20120928
  Serious: Yes (Hospitalization, Other)
  Sender: FDA-Public Use
  Company Number: US-ABBOTT-12P-163-0922277-00

PATIENT
  Sex: Female
  Weight: 104.42 kg

DRUGS (3)
  1. ENBREL [Suspect]
     Indication: PRODUCT USED FOR UNKNOWN INDICATION
     Dates: end: 20110801
  2. HUMIRA [Suspect]
     Route: 058
     Dates: start: 20120101, end: 20120112
  3. HUMIRA [Suspect]
     Indication: RHEUMATOID ARTHRITIS
     Dates: start: 20110801

REACTIONS (3)
  - HIP SURGERY [None]
  - FRACTURE DELAYED UNION [None]
  - IMPAIRED HEALING [None]
